FAERS Safety Report 7985477-7 (Version None)
Quarter: 2011Q4

REPORT INFORMATION
  Report Type: 
  Country: None (occurrence: None)
  Receive Date: 20111216
  Receipt Date: 20111024
  Transmission Date: 20120403
  Serious: Yes (Hospitalization)
  Sender: FDA-Public Use
  Company Number: US-ROCHE-1022033

PATIENT
  Sex: Female
  Weight: 63.923 kg

DRUGS (2)
  1. PREDNISONE TAB [Concomitant]
  2. MABTHERA [Suspect]
     Indication: RHEUMATOID ARTHRITIS

REACTIONS (7)
  - BACTERIAL INFECTION [None]
  - WEIGHT DECREASED [None]
  - CORONARY ARTERIAL STENT INSERTION [None]
  - MYOCARDIAL INFARCTION [None]
  - PYREXIA [None]
  - DIARRHOEA [None]
  - HYPERTHYROIDISM [None]
